FAERS Safety Report 6182212-2 (Version None)
Quarter: 2009Q2

REPORT INFORMATION
  Report Type: 
  Country: None (occurrence: None)
  Receive Date: 20090505
  Receipt Date: 20090505
  Transmission Date: 20091009
  Serious: No
  Sender: FDA-Public Use
  Company Number: None

PATIENT
  Age: 70 Year
  Sex: Female
  Weight: 59.8748 kg

DRUGS (3)
  1. LEVAQUIN [Suspect]
     Indication: BRONCHITIS
     Dosage: 750 MG  1 PER DAY
     Dates: start: 20090314, end: 20090318
  2. LEVAQUIN [Suspect]
     Indication: NASOPHARYNGITIS
     Dosage: 750 MG  1 PER DAY
     Dates: start: 20090314, end: 20090318
  3. LEVAQUIN [Suspect]
     Indication: SINUS DISORDER
     Dosage: 750 MG  1 PER DAY
     Dates: start: 20090314, end: 20090318

REACTIONS (5)
  - ACTIVITIES OF DAILY LIVING IMPAIRED [None]
  - IMPAIRED WORK ABILITY [None]
  - MOVEMENT DISORDER [None]
  - MUSCULOSKELETAL PAIN [None]
  - TENDON PAIN [None]
